FAERS Safety Report 6333492-1 (Version None)
Quarter: 2009Q3

REPORT INFORMATION
  Report Type: 
  Country: None (occurrence: None)
  Receive Date: 20090828
  Receipt Date: 20090806
  Transmission Date: 20100115
  Serious: Yes (Hospitalization)
  Sender: FDA-Public Use
  Company Number: IE-ABBOTT-09P-229-0586112-00

PATIENT
  Age: 28 Year
  Sex: Female
  Weight: 80 kg

DRUGS (2)
  1. REDUCTIL [Suspect]
     Indication: WEIGHT CONTROL
     Dates: start: 20090101, end: 20090601
  2. CONTRACEPTION (UNKNOWN) [Concomitant]
     Indication: CONTRACEPTION
     Route: 048

REACTIONS (2)
  - PURPURA [None]
  - THROMBOCYTOPENIA [None]
